FAERS Safety Report 6151136-9 (Version None)
Quarter: 2009Q2

REPORT INFORMATION
  Report Type: 
  Country: None (occurrence: None)
  Receive Date: 20090410
  Receipt Date: 20090331
  Transmission Date: 20091009
  Serious: Yes (Hospitalization)
  Sender: FDA-Public Use
  Company Number: NZ-PFIZER INC-2009190578

PATIENT

DRUGS (1)
  1. ZELDOX [Suspect]

REACTIONS (3)
  - CARDIAC ARREST [None]
  - DELIRIUM [None]
  - INTENSIVE CARE [None]
